FAERS Safety Report 5127386-7 (Version None)
Quarter: 2006Q4

REPORT INFORMATION
  Report Type: 
  Country: None (occurrence: None)
  Receive Date: 20061012
  Receipt Date: 20061012
  Transmission Date: 20070319
  Serious: Yes (Other)
  Sender: FDA-Public Use
  Company Number: None

PATIENT
  Sex: Female

DRUGS (1)
  1. TUBERSOL [Suspect]
     Dosage: INTRADERMAL PPD LEFT FOREARM
     Route: 023
     Dates: start: 20060301, end: 20060301

REACTIONS (4)
  - ASTHENIA [None]
  - HYPOTENSION [None]
  - MALAISE [None]
  - TREMOR [None]
